FAERS Safety Report 15289141 (Version 1)
Quarter: 2018Q3

REPORT INFORMATION
  Report Type: Spontaneous
  Country: MX (occurrence: MX)
  Receive Date: 20180817
  Receipt Date: 20180817
  Transmission Date: 20181010
  Serious: Yes (Other)
  Sender: FDA-Public Use
  Company Number: MX-BAUSCH-BL-2018-022514

PATIENT
  Age: 50 Year
  Sex: Female
  Weight: 57 kg

DRUGS (1)
  1. VIRAZIDE [Suspect]
     Active Substance: RIBAVIRIN
     Indication: APHTHOUS ULCER
     Route: 048
     Dates: start: 20180726, end: 20180727

REACTIONS (2)
  - Red blood cell abnormality [Recovered/Resolved]
  - Jaundice [Recovered/Resolved]

NARRATIVE: CASE EVENT DATE: 20180726
